FAERS Safety Report 6255928-7 (Version None)
Quarter: 2009Q3

REPORT INFORMATION
  Report Type: 
  Country: None (occurrence: None)
  Receive Date: 20090706
  Receipt Date: 20071221
  Transmission Date: 20100115
  Serious: Yes (Other)
  Sender: FDA-Public Use
  Company Number: US-ASTRAZENECA-2006UW23984

PATIENT
  Age: 14170 Day
  Sex: Male
  Weight: 173.6 kg

DRUGS (8)
  1. SEROQUEL [Suspect]
     Indication: MENTAL DISORDER
     Dosage: 25 MG TO 300 MG
     Route: 048
     Dates: start: 20010803
  2. ZYPREXA [Concomitant]
     Dosage: 10 MG TO 15 MG
     Route: 048
     Dates: start: 19961127
  3. RISPERDAL [Concomitant]
     Route: 048
     Dates: start: 19960514
  4. GLYBURIDE [Concomitant]
     Route: 048
     Dates: start: 19960122
  5. ATENOLOL [Concomitant]
     Dosage: 100 MG TO 150 MG
     Route: 048
     Dates: start: 19951229
  6. NOVOLIN N [Concomitant]
     Dosage: STRENGTH 100 U/ML
     Route: 058
     Dates: start: 19960222
  7. NOVOLIN R [Concomitant]
     Dosage: STRENGTH 100 U/ML
     Route: 058
     Dates: start: 19960222
  8. COZAAR [Concomitant]
     Route: 048
     Dates: start: 19991012

REACTIONS (2)
  - DIABETES MELLITUS [None]
  - DIABETIC NEUROPATHY [None]
